FAERS Safety Report 5551014-X (Version None)
Quarter: 2007Q4

REPORT INFORMATION
  Report Type: 
  Country: None (occurrence: None)
  Receive Date: 20071212
  Receipt Date: 20070522
  Transmission Date: 20080405
  Serious: No
  Sender: FDA-Public Use
  Company Number: US-AMGEN-KDL223879

PATIENT
  Sex: Male
  Weight: 110.3 kg

DRUGS (9)
  1. ENBREL [Suspect]
     Indication: RHEUMATOID ARTHRITIS
     Route: 058
     Dates: start: 20040506
  2. METHOTREXATE [Concomitant]
     Route: 048
     Dates: start: 19820101
  3. AGGRENOX [Concomitant]
  4. ACEON [Concomitant]
  5. CADUET [Concomitant]
  6. ASPIRIN [Concomitant]
  7. PROVIGIL [Concomitant]
  8. CELEXA [Concomitant]
  9. DITROPAN [Concomitant]

REACTIONS (7)
  - ARTHRALGIA [None]
  - COUGH [None]
  - ERECTILE DYSFUNCTION [None]
  - MOUTH ULCERATION [None]
  - RHEUMATOID ARTHRITIS [None]
  - RHINORRHOEA [None]
  - SINUSITIS [None]
